FAERS Safety Report 4357954-1 (Version None)
Quarter: 2004Q2

REPORT INFORMATION
  Report Type: 
  Country: None (occurrence: None)
  Receive Date: 20040510
  Receipt Date: 20040309
  Transmission Date: 20050107
  Serious: Yes (Hospitalization)
  Sender: FDA-Public Use
  Company Number: 7637

PATIENT
  Age: 83 Year
  Sex: Male

DRUGS (6)
  1. REMICADE [Suspect]
     Dosage: 300 MG OTH IV
     Route: 042
     Dates: start: 20011212, end: 20030603
  2. METHOTREXATE [Suspect]
     Dosage: 10 MG WEEKLY SC
     Route: 058
     Dates: end: 20030603
  3. PREVACID [Concomitant]
  4. CELEBREX [Concomitant]
  5. FOLIC ACID [Concomitant]
  6. COUMADIN [Concomitant]

REACTIONS (4)
  - ARTHRITIS INFECTIVE [None]
  - GLYCOPEPTIDE ANTIBIOTIC RESISTANT ENTEROCOCCAL INFECTION [None]
  - IMPLANT SITE INFECTION [None]
  - KNEE ARTHROPLASTY [None]
